FAERS Safety Report 9542396 (Version 1)
Quarter: 2013Q3

REPORT INFORMATION
  Report Type: Spontaneous
  Country: IR (occurrence: None)
  Receive Date: 20130918
  Receipt Date: 20130918
  Transmission Date: 20140515
  Serious: Yes (Death, Other)
  Sender: FDA-Public Use
  Company Number: FK201304253

PATIENT
  Age: 25 Year
  Sex: Male

DRUGS (4)
  1. FLUOROURACIL (FLUOROURACIL) [Suspect]
     Indication: RECTOSIGMOID CANCER
  2. OXALIPLATIN (OXALIPLATIN) [Suspect]
     Indication: RECTOSIGMOID CANCER
  3. LEUCOVORIN CALCIUM (LEUCOVORIN CALCIUM) [Suspect]
     Indication: RECTOSIGMOID CANCER
  4. IRINOTECAN (IRINOTECAN) [Suspect]
     Indication: RECTOSIGMOID CANCER

REACTIONS (7)
  - Chronic myeloid leukaemia [None]
  - Malignant neoplasm progression [None]
  - Abdominal discomfort [None]
  - Leukocytosis [None]
  - Granulocytosis [None]
  - Shift to the left [None]
  - Metastases to bone [None]
